FAERS Safety Report 8849550 (Version 2)
Quarter: 2014Q2

REPORT INFORMATION
  Report Type: Spontaneous
  Country: JP (occurrence: JP)
  Receive Date: 20121019
  Receipt Date: 20131018
  Transmission Date: 20141212
  Serious: Yes (Life-Threatening, Hospitalization, Other)
  Sender: FDA-Public Use
  Company Number: JP-PFIZER INC-2012257837

PATIENT
  Age: 60 Year
  Sex: Female
  Weight: 54 kg

DRUGS (24)
  1. LIPITOR [Suspect]
     Indication: DYSLIPIDAEMIA
     Dosage: 5 MG, 1X/DAY
     Route: 048
     Dates: start: 20100331
  2. RHEUMATREX [Suspect]
     Dosage: 16 MG, WEEKLY
     Route: 048
     Dates: start: 20111027, end: 2012
  3. RHEUMATREX [Suspect]
     Dosage: 16 MG, DAILY
     Route: 048
     Dates: start: 2012, end: 20120315
  4. RHEUMATREX [Suspect]
     Dosage: 16 MG, DAILY
     Route: 048
     Dates: start: 20120319
  5. OCRELIZUMAB [Suspect]
     Indication: RHEUMATOID ARTHRITIS
     Dosage: CYCLIC
     Route: 042
     Dates: start: 20081202
  6. OCRELIZUMAB [Suspect]
     Dosage: CYCLIC
     Route: 042
     Dates: start: 20081216
  7. OCRELIZUMAB [Suspect]
     Dosage: CYCLIC
     Route: 042
     Dates: start: 20090515
  8. OCRELIZUMAB [Suspect]
     Dosage: CYCLIC
     Route: 065
     Dates: start: 20090529
  9. ACTEMRA [Suspect]
     Dosage: 8 MG/KG, MONTHLY
     Route: 065
     Dates: start: 20120216
  10. ACTEMRA [Suspect]
     Dosage: 8 MG/KG, DAILY
     Route: 065
     Dates: start: 20120315
  11. REMICADE [Suspect]
     Dosage: 3 MG/KG, DAILY
     Route: 065
     Dates: start: 20091202
  12. REMICADE [Suspect]
     Dosage: 6 MG/KG, DAILY
     Route: 065
     Dates: start: 20111208, end: 20111208
  13. REMICADE [Suspect]
     Dosage: 6 MG/KG, DAILY
     Dates: start: 20091202, end: 2012
  14. PREDNISOLONE [Suspect]
     Dosage: 4 MG, 1X/DAY
     Dates: start: 20111208
  15. CELECOX [Concomitant]
     Dosage: UNK
     Dates: start: 20100727
  16. FOLIC ACID [Concomitant]
     Dosage: UNK
     Dates: start: 20100331
  17. KETOPROFEN [Concomitant]
     Dosage: UNK
     Dates: start: 20061225
  18. ALENDRONATE SODIUM [Concomitant]
     Dosage: UNK
     Dates: start: 20100331
  19. ALFACALCIDOL [Concomitant]
     Dosage: UNK
     Route: 048
     Dates: start: 20100331
  20. LANSOPRAZOLE [Concomitant]
     Dosage: UNK
     Dates: start: 20100331
  21. CLARITHROMYCIN [Concomitant]
     Dosage: UNK
     Route: 048
     Dates: start: 20110216
  22. BLOPRESS [Concomitant]
     Dosage: UNK
     Dates: start: 20100216
  23. LEUCOVORIN [Concomitant]
     Dosage: UNK
     Dates: start: 20120315
  24. BIO THREE [Concomitant]
     Indication: DIARRHOEA
     Dosage: UNK
     Dates: start: 20111222

REACTIONS (3)
  - Septic shock [Recovered/Resolved]
  - Peritonitis [Recovered/Resolved]
  - Diverticular perforation [Recovered/Resolved]
